FAERS Safety Report 6408673-9 (Version None)
Quarter: 2009Q4

REPORT INFORMATION
  Report Type: 
  Country: None (occurrence: None)
  Receive Date: 20091019
  Receipt Date: 20091005
  Transmission Date: 20100525
  Serious: Yes (Hospitalization)
  Sender: FDA-Public Use
  Company Number: CIP09002818

PATIENT
  Age: 85 Year
  Sex: Female

DRUGS (4)
  1. FURADANTIN [Suspect]
     Dosage: 100 MG DAILY, ORAL
     Route: 048
     Dates: start: 20090501, end: 20090601
  2. ZOCOR [Concomitant]
  3. LERCANIDIPINE [Concomitant]
  4. FOSAVANCE (ALENDRONATE SODIUM, COLECALCIFEROL) [Concomitant]

REACTIONS (9)
  - CONFUSIONAL STATE [None]
  - DIALYSIS [None]
  - EOSINOPHILIA [None]
  - INCORRECT DOSE ADMINISTERED [None]
  - INCORRECT DRUG ADMINISTRATION DURATION [None]
  - INTERSTITIAL LUNG DISEASE [None]
  - LEUKOCYTURIA [None]
  - RENAL FAILURE ACUTE [None]
  - TUBULOINTERSTITIAL NEPHRITIS [None]
